FAERS Safety Report 11155652 (Version 1)
Quarter: 2015Q2

REPORT INFORMATION
  Report Type: Spontaneous
  Country: GB (occurrence: GB)
  Receive Date: 20150602
  Receipt Date: 20150602
  Transmission Date: 20150821
  Serious: Yes (Death)
  Sender: FDA-Public Use
  Company Number: GB-WATSON-2015-10815

PATIENT
  Age: 59 Year
  Sex: Male
  Weight: 98 kg

DRUGS (5)
  1. ATRACURIUM (UNKNOWN) [Suspect]
     Active Substance: ATRACURIUM
     Indication: MECHANICAL VENTILATION
     Dosage: 30 MG, UNKNOWN
     Route: 042
     Dates: start: 20150324, end: 20150324
  2. ONDANSETRON [Concomitant]
     Active Substance: ONDANSETRON
     Indication: GENERAL ANAESTHESIA
     Dosage: 4 MG, UNKNOWN
     Route: 042
     Dates: start: 20150324
  3. FENTANYL. [Concomitant]
     Active Substance: FENTANYL
     Indication: GENERAL ANAESTHESIA
     Dosage: 100 MG, UNKNOWN
     Route: 042
     Dates: start: 20150324
  4. PROPOFOL. [Concomitant]
     Active Substance: PROPOFOL
     Indication: GENERAL ANAESTHESIA
     Dosage: 200 MG, UNKNOWN
     Route: 042
     Dates: start: 20150324
  5. MORPHINE [Concomitant]
     Active Substance: MORPHINE
     Indication: GENERAL ANAESTHESIA
     Dosage: 2 MG, UNKNOWN
     Route: 042
     Dates: start: 20150324

REACTIONS (1)
  - Death [Fatal]
